FAERS Safety Report 17172304 (Version 1)
Quarter: 2019Q4

REPORT INFORMATION
  Report Type: Spontaneous
  Country: BR (occurrence: BR)
  Receive Date: 20191218
  Receipt Date: 20191218
  Transmission Date: 20200122
  Serious: Yes (Other)
  Sender: FDA-Public Use
  Company Number: PHHY2014BR062713

PATIENT
  Sex: Female
  Weight: 65 kg

DRUGS (10)
  1. ATLANSIL//AMIODARONE [Concomitant]
     Active Substance: AMIODARONE
     Indication: HYPERTENSION
     Dosage: 100 MG, UNKNOWN
     Route: 065
  2. OLCADIL [Suspect]
     Active Substance: CLOXAZOLAM
     Indication: ANXIETY
  3. CRESTOR [Concomitant]
     Active Substance: ROSUVASTATIN CALCIUM
     Indication: BLOOD CHOLESTEROL ABNORMAL
     Dosage: UNK
     Route: 065
  4. OLCADIL [Suspect]
     Active Substance: CLOXAZOLAM
     Indication: TACHYCARDIA
     Dosage: 1 DF, DAILY SPORADICALLY
     Route: 048
  5. ATENOLOL. [Concomitant]
     Active Substance: ATENOLOL
     Indication: HYPERTENSION
     Dosage: 100 MG, UNK
     Route: 065
  6. OLCADIL [Suspect]
     Active Substance: CLOXAZOLAM
     Indication: NERVOUSNESS
  7. FEMARA [Suspect]
     Active Substance: LETROZOLE
     Indication: BREAST CANCER
     Dosage: 1 DF, QD (AT 15:00)
     Route: 048
     Dates: start: 201908
  8. DAFORIN [Concomitant]
     Active Substance: FLUOXETINE HYDROCHLORIDE
     Indication: DEPRESSION
     Dosage: 20 MG, QD (IN MORNING)
     Route: 065
  9. LEXOTAN [Concomitant]
     Active Substance: BROMAZEPAM
     Indication: AGITATION
     Dosage: UNK
     Route: 065
  10. GLIFAGE [Interacting]
     Active Substance: METFORMIN HYDROCHLORIDE
     Indication: DIABETES MELLITUS
     Dosage: UNK
     Route: 065

REACTIONS (5)
  - Glaucoma [Not Recovered/Not Resolved]
  - Dry eye [Not Recovered/Not Resolved]
  - Eye disorder [Unknown]
  - Productive cough [Not Recovered/Not Resolved]
  - Dry mouth [Not Recovered/Not Resolved]

NARRATIVE: CASE EVENT DATE: 2011
